FAERS Safety Report 9397011 (Version 1)
Quarter: 2013Q3

REPORT INFORMATION
  Report Type: Spontaneous
  Country: US (occurrence: None)
  Receive Date: 20130710
  Receipt Date: 20130710
  Transmission Date: 20140515
  Serious: Yes (Other)
  Sender: FDA-Public Use
  Company Number: None

PATIENT
  Age: 42 Year
  Sex: Female

DRUGS (1)
  1. QSYMIA [Suspect]
     Indication: BODY MASS INDEX INCREASED
     Dosage: 3.75/23
     Route: 048
     Dates: start: 20130703, end: 20130705

REACTIONS (5)
  - Paraesthesia [None]
  - Confusional state [None]
  - Disturbance in attention [None]
  - Thinking abnormal [None]
  - Feeling abnormal [None]
